FAERS Safety Report 12174873 (Version 4)
Quarter: 2016Q2

REPORT INFORMATION
  Report Type: Spontaneous
  Country: US (occurrence: US)
  Receive Date: 20160314
  Receipt Date: 20160516
  Transmission Date: 20160815
  Serious: Yes (Other)
  Sender: FDA-Public Use
  Company Number: US-CTI_01859_2016

PATIENT
  Sex: Female

DRUGS (4)
  1. PULMOZYME [Concomitant]
     Active Substance: DORNASE ALFA
     Indication: CYSTIC FIBROSIS
     Dosage: DF
  2. LEVALBUTEROL. [Concomitant]
     Active Substance: LEVALBUTEROL
     Indication: CYSTIC FIBROSIS
     Dosage: DF
  3. BETHKIS [Suspect]
     Active Substance: TOBRAMYCIN
     Indication: CYSTIC FIBROSIS
     Route: 055
     Dates: start: 20151209
  4. BETHKIS [Suspect]
     Active Substance: TOBRAMYCIN
     Route: 055
     Dates: start: 20160120, end: 201602

REACTIONS (2)
  - Oropharyngeal pain [Unknown]
  - Haemoptysis [Unknown]

NARRATIVE: CASE EVENT DATE: 2016
